FAERS Safety Report 10223103 (Version 1)
Quarter: 2014Q2

REPORT INFORMATION
  Report Type: Spontaneous
  Country: CA (occurrence: CA)
  Receive Date: 20140607
  Receipt Date: 20140607
  Transmission Date: 20141212
  Serious: Yes (Death, Other)
  Sender: FDA-Public Use
  Company Number: PHHY2014CA067137

PATIENT
  Age: 69 Year
  Sex: Male

DRUGS (3)
  1. VANCOMYCIN [Suspect]
     Indication: ESCHERICHIA SEPSIS
     Route: 042
  2. PIPERACILLIN/TAZOBACTAM [Concomitant]
     Indication: ESCHERICHIA SEPSIS
  3. CEFTRIAXONE [Concomitant]
     Indication: ANTIBIOTIC PROPHYLAXIS

REACTIONS (3)
  - Hepatorenal syndrome [Fatal]
  - Oesophageal varices haemorrhage [Fatal]
  - Drug resistance [Unknown]
